FAERS Safety Report 4547890-X (Version None)
Quarter: 2005Q1

REPORT INFORMATION
  Report Type: 
  Country: None (occurrence: None)
  Receive Date: 20050110
  Receipt Date: 20041229
  Transmission Date: 20050727
  Serious: Yes (Other)
  Sender: FDA-Public Use
  Company Number: US-JNJFOC-20041206628

PATIENT
  Sex: Female
  Weight: 53.52 kg

DRUGS (9)
  1. REMICADE [Suspect]
     Dosage: LAST DOSE
     Route: 042
  2. REMICADE [Suspect]
     Indication: RHEUMATOID ARTHRITIS
     Route: 042
  3. METHOTREXATE [Concomitant]
     Indication: RHEUMATOID ARTHRITIS
  4. PREDNISONE [Concomitant]
     Indication: STEROID THERAPY
  5. FOLIC ACID [Concomitant]
     Indication: BONE DENSITOMETRY
  6. PLAQUENIL [Concomitant]
  7. KDUR [Concomitant]
  8. ACTONIL [Concomitant]
  9. LOVOXIL [Concomitant]

REACTIONS (3)
  - LUPUS-LIKE SYNDROME [None]
  - VOMITING [None]
  - WEIGHT DECREASED [None]
